FAERS Safety Report 14688582 (Version 1)
Quarter: 2018Q1

REPORT INFORMATION
  Report Type: Spontaneous
  Country: US (occurrence: US)
  Receive Date: 20180328
  Receipt Date: 20180328
  Transmission Date: 20180509
  Serious: No
  Sender: FDA-Public Use
  Company Number: US-PFIZER INC-2018121412

PATIENT
  Age: 9 Year
  Sex: Male
  Weight: 25.4 kg

DRUGS (1)
  1. QUILLICHEW ER [Suspect]
     Active Substance: METHYLPHENIDATE HYDROCHLORIDE
     Indication: ATTENTION DEFICIT/HYPERACTIVITY DISORDER
     Dosage: 10 MG, UNK
     Route: 048
     Dates: start: 20180320

REACTIONS (4)
  - Retching [Unknown]
  - Product use complaint [Unknown]
  - Drug ineffective [Unknown]
  - Dysphagia [Unknown]
